FAERS Safety Report 4892341-9 (Version None)
Quarter: 2006Q1

REPORT INFORMATION
  Report Type: 
  Country: None (occurrence: None)
  Receive Date: 20060126
  Receipt Date: 20060119
  Transmission Date: 20060701
  Serious: Yes (Other)
  Sender: FDA-Public Use
  Company Number: BR-GLAXOSMITHKLINE-A0590610A

PATIENT
  Age: 14 Year
  Sex: Male
  Weight: 23 kg

DRUGS (1)
  1. FLIXONASE [Suspect]
     Indication: ADENOIDAL HYPERTROPHY
     Route: 045
     Dates: start: 20060116

REACTIONS (1)
  - DEAFNESS [None]
